FAERS Safety Report 11922859 (Version 2)
Quarter: 2016Q1

REPORT INFORMATION
  Report Type: Spontaneous
  Country: JP (occurrence: JP)
  Receive Date: 20160116
  Receipt Date: 20160125
  Transmission Date: 20160526
  Serious: Yes (Other)
  Sender: FDA-Public Use
  Company Number: JP-SUN PHARMACEUTICAL INDUSTRIES LTD-2015R1-97867

PATIENT
  Age: 62 Year
  Sex: Male
  Weight: 63 kg

DRUGS (1)
  1. IMATINIB [Suspect]
     Active Substance: IMATINIB
     Indication: METASTASES TO LIVER
     Dosage: 400 MG, DAILY
     Route: 065

REACTIONS (3)
  - Drug resistance [Unknown]
  - Disease progression [Recovered/Resolved]
  - Therapeutic response decreased [Unknown]
